FAERS Safety Report 4852189-8 (Version None)
Quarter: 2005Q4

REPORT INFORMATION
  Report Type: 
  Country: None (occurrence: None)
  Receive Date: 20051213
  Receipt Date: 20051208
  Transmission Date: 20060501
  Serious: Yes (Other)
  Sender: FDA-Public Use
  Company Number: US-GLAXOSMITHKLINE-A0585130A

PATIENT
  Age: 44 Year
  Sex: Female

DRUGS (3)
  1. PAROXETINE HCL [Suspect]
     Indication: DEPRESSION
     Dosage: 30MG IN THE MORNING
     Route: 048
     Dates: end: 20051111
  2. LAMICTAL [Concomitant]
  3. KLONOPIN [Concomitant]

REACTIONS (10)
  - ANOREXIA [None]
  - HYPERTENSION [None]
  - HYPOAESTHESIA [None]
  - INSOMNIA [None]
  - NAUSEA [None]
  - PHARMACEUTICAL PRODUCT COMPLAINT [None]
  - VAGINAL HAEMORRHAGE [None]
  - VERTIGO [None]
  - WEIGHT DECREASED [None]
  - WEIGHT INCREASED [None]
